FAERS Safety Report 17109389 (Version 2)
Quarter: 2020Q1

REPORT INFORMATION
  Report Type: Spontaneous
  Country: US (occurrence: US)
  Receive Date: 20191204
  Receipt Date: 20200306
  Transmission Date: 20200409
  Serious: No
  Sender: FDA-Public Use
  Company Number: US-GILEAD-2019-0440470

PATIENT
  Age: 60 Year
  Sex: Female

DRUGS (18)
  1. ASPIRIN [ACETYLSALICYLIC ACID] [Concomitant]
     Active Substance: ASPIRIN
  2. TIZANIDINE HYDROCHLORIDE. [Concomitant]
     Active Substance: TIZANIDINE HYDROCHLORIDE
  3. NAPROXEN. [Concomitant]
     Active Substance: NAPROXEN
  4. DICYCLOVERINE HYDROCHLORIDE [Concomitant]
     Active Substance: DICYCLOMINE HYDROCHLORIDE
  5. VENLAFAXINE [Concomitant]
     Active Substance: VENLAFAXINE HYDROCHLORIDE
  6. IBUPROFEN. [Concomitant]
     Active Substance: IBUPROFEN
  7. FLONASE [Concomitant]
     Active Substance: FLUTICASONE PROPIONATE
  8. LEVEMIR [Concomitant]
     Active Substance: INSULIN DETEMIR
  9. GABAPENTIN. [Concomitant]
     Active Substance: GABAPENTIN
  10. EPCLUSA [Suspect]
     Active Substance: SOFOSBUVIR\VELPATASVIR
     Indication: CHRONIC HEPATITIS C
     Dosage: 1 DOSAGE FORM, QD
     Route: 048
     Dates: start: 20191123, end: 20200221
  11. TRAZODONE HYDROCHLORIDE. [Concomitant]
     Active Substance: TRAZODONE HYDROCHLORIDE
  12. ACETAMINOPHEN AND CODEINE [Concomitant]
     Active Substance: ACETAMINOPHEN\CODEINE PHOSPHATE
  13. NAMENDA [Concomitant]
     Active Substance: MEMANTINE HYDROCHLORIDE
  14. PRAVASTATIN SODIUM. [Concomitant]
     Active Substance: PRAVASTATIN SODIUM
  15. NOVOLOG [Concomitant]
     Active Substance: INSULIN ASPART
  16. FLAXSEED OIL [LINUM USITATISSIMUM OIL] [Concomitant]
  17. ENALAPRIL MALEATE. [Concomitant]
     Active Substance: ENALAPRIL MALEATE
  18. SUPREP BOWEL PREP [Concomitant]
     Active Substance: MAGNESIUM SULFATE\POTASSIUM SULFATE\SODIUM SULFATE

REACTIONS (5)
  - Gastric disorder [Unknown]
  - Alopecia [Unknown]
  - Eye pruritus [Not Recovered/Not Resolved]
  - Arthritis [Unknown]
  - Lip dry [Unknown]

NARRATIVE: CASE EVENT DATE: 201911
